FAERS Safety Report 10420483 (Version 1)
Quarter: 2014Q3

REPORT INFORMATION
  Report Type: Spontaneous
  Country: US (occurrence: None)
  Receive Date: 20140708
  Receipt Date: 20140708
  Transmission Date: 20150326
  Serious: Yes (Other)
  Sender: FDA-Public Use
  Company Number: RB-59843-2013

PATIENT
  Age: 73 Year
  Sex: Female

DRUGS (1)
  1. DEXTROMETHORPHAN\DEXTROMETHORPHAN HYDROBROMIDE\GUAIFENESIN [Suspect]
     Active Substance: DEXTROMETHORPHAN\DEXTROMETHORPHAN HYDROBROMIDE\GUAIFENESIN
     Indication: FIBROMYALGIA
     Dosage: 1200 MG 1X/12 HOURS ORAL
     Route: 048

REACTIONS (3)
  - Off label use [None]
  - Incorrect drug administration duration [None]
  - No adverse event [None]
